FAERS Safety Report 5721781-0 (Version None)
Quarter: 2008Q2

REPORT INFORMATION
  Report Type: 
  Country: None (occurrence: None)
  Receive Date: 20080429
  Receipt Date: 20080421
  Transmission Date: 20081010
  Serious: Yes (Death, Hospitalization)
  Sender: FDA-Public Use
  Company Number: ES-ROCHE-559084

PATIENT
  Sex: Male
  Weight: 52 kg

DRUGS (5)
  1. CAPECITABINE [Suspect]
     Dosage: 1000 MG/M2/12H GIVEN DAYS 1-14 OF 21 DAY CYCLE AS PER PROTOCOL. DISCONTINUED 14 APR 2008.
     Route: 048
     Dates: start: 20080403, end: 20080406
  2. BEVACIZUMAB [Suspect]
     Dosage: 7.5 MG/KG GIVEN ON DAY1 OF 21 DAY CYCLE AS PER PROTOCOL. DISCONTINUED 14 APR 2008.
     Route: 042
     Dates: start: 20080313, end: 20080414
  3. OXALIPLATIN [Suspect]
     Dosage: 130 MG/M2 GIVEN ON DAY 1OF 21 DAY CYCLE AS PER PROTOCOL. DISCONTINUED 14 APR 2008.
     Route: 042
     Dates: start: 20080313, end: 20080414
  4. REPAGLINIDA [Concomitant]
     Dates: end: 20080407
  5. METFORMINA [Concomitant]
     Dates: end: 20080407

REACTIONS (5)
  - DEHYDRATION [None]
  - DIABETIC KETOACIDOSIS [None]
  - DIARRHOEA [None]
  - NEUTROPENIA [None]
  - PLATELET COUNT DECREASED [None]
